FAERS Safety Report 5697231-X (Version None)
Quarter: 2008Q2

REPORT INFORMATION
  Report Type: 
  Country: None (occurrence: None)
  Receive Date: 20080408
  Receipt Date: 20080403
  Transmission Date: 20081010
  Serious: Yes (Death)
  Sender: FDA-Public Use
  Company Number: US-WYE-H03428108

PATIENT
  Sex: Female
  Weight: 65.83 kg

DRUGS (11)
  1. RAPAMUNE [Suspect]
     Indication: METASTATIC RENAL CELL CARCINOMA
     Route: 048
     Dates: start: 20061226, end: 20070103
  2. DECADRON [Concomitant]
     Dosage: DOSE AND FREQUENCY NOT SPECIFIED
     Route: 065
     Dates: start: 20061201, end: 20070202
  3. NORVASC [Concomitant]
     Dosage: DOSE AND FREQUENCY NOT SPECIFIED
     Route: 065
     Dates: start: 20051201, end: 20070202
  4. LOPRESSOR [Concomitant]
     Dosage: DOSE AND FREQUENCY NOT SPECIFIED
     Route: 065
     Dates: start: 20051201, end: 20070202
  5. ERLOTINIB [Suspect]
     Indication: METASTATIC RENAL CELL CARCINOMA
     Route: 048
     Dates: start: 20061214, end: 20070103
  6. COUMADIN [Concomitant]
     Dosage: DOSE AND FREQUENCY NOT SPECIFIED
     Route: 065
     Dates: start: 20061201, end: 20070202
  7. REMERON [Concomitant]
     Dosage: DOSE AND FREQUENCY NOT SPECIFIED
     Route: 065
     Dates: start: 20060301, end: 20070202
  8. FENTANYL [Concomitant]
     Dosage: DOSE AND FREQUENCY NOT SPECIFIED
     Route: 065
     Dates: start: 20061201, end: 20070202
  9. ZOMETA [Concomitant]
     Dosage: DOSE AND FREQUENCY NOT SPECIFIED
     Route: 065
     Dates: start: 20060601, end: 20070202
  10. PREVACID [Concomitant]
     Dosage: DOSE AND FREQUENCY NOT SPECIFIED
     Route: 065
     Dates: start: 20061201, end: 20070202
  11. DILAUDID [Concomitant]
     Dosage: DOSE AND FREQUENCY NOT SPECIFIED
     Route: 055
     Dates: start: 20051201, end: 20070202

REACTIONS (1)
  - DISEASE PROGRESSION [None]
